FAERS Safety Report 8150856-4 (Version None)
Quarter: 2012Q1

REPORT INFORMATION
  Report Type: 
  Country: None (occurrence: None)
  Receive Date: 20120220
  Receipt Date: 20120207
  Transmission Date: 20120608
  Serious: Yes (Hospitalization, Other)
  Sender: FDA-Public Use
  Company Number: US-ELI_LILLY_AND_COMPANY-US200604002386

PATIENT
  Sex: Female

DRUGS (7)
  1. CADUET [Concomitant]
     Indication: BLOOD PRESSURE ABNORMAL
     Dosage: 10 MG, QD
     Route: 048
     Dates: start: 20110730
  2. LITHIUM CARBONATE [Concomitant]
     Indication: BIPOLAR DISORDER
     Dates: end: 19991211
  3. ZYPREXA [Suspect]
     Dosage: 2.5 MG, QD
  4. ZYPREXA [Suspect]
     Indication: BIPOLAR DISORDER
     Dosage: 15 MG, QD
     Route: 048
     Dates: start: 19991101, end: 20010101
  5. ZYPREXA [Suspect]
     Dosage: 20 MG, QD
  6. ZYPREXA [Suspect]
     Dosage: UNK, UNKNOWN
  7. ANTIHYPERTENSIVES [Concomitant]
     Indication: HYPERTENSION

REACTIONS (20)
  - BLOOD PRESSURE INCREASED [None]
  - WEIGHT INCREASED [None]
  - SOMNOLENCE [None]
  - DIZZINESS [None]
  - DYSURIA [None]
  - ASCITES [None]
  - BLINDNESS [None]
  - VISUAL IMPAIRMENT [None]
  - RENAL FAILURE [None]
  - PANCREATITIS [None]
  - DRY MOUTH [None]
  - GASTRIC ULCER HELICOBACTER [None]
  - GENERAL PHYSICAL HEALTH DETERIORATION [None]
  - PAIN [None]
  - TOXICITY TO VARIOUS AGENTS [None]
  - PNEUMONIA [None]
  - AMENORRHOEA [None]
  - VOMITING [None]
  - BRAIN INJURY [None]
  - HYPOTHYROIDISM [None]
